FAERS Safety Report 18807602 (Version 1)
Quarter: 2021Q1

REPORT INFORMATION
  Report Type: Spontaneous
  Country: US (occurrence: US)
  Receive Date: 20210128
  Receipt Date: 20210128
  Transmission Date: 20210419
  Serious: Yes (Other)
  Sender: FDA-Public Use
  Company Number: None

PATIENT
  Age: 10 Year
  Sex: Female
  Weight: 39.46 kg

DRUGS (1)
  1. METHYLPHENIDATE 27MG ER OSM TABLET [Suspect]
     Active Substance: METHYLPHENIDATE
     Indication: ATTENTION DEFICIT HYPERACTIVITY DISORDER
     Route: 048
     Dates: start: 20201122, end: 20201220

REACTIONS (7)
  - Dyskinesia [None]
  - Muscle spasms [None]
  - Affect lability [None]
  - Product substitution issue [None]
  - Pain [None]
  - Aggression [None]
  - Psychomotor hyperactivity [None]

NARRATIVE: CASE EVENT DATE: 20201122
